FAERS Safety Report 6269874-6 (Version None)
Quarter: 2009Q3

REPORT INFORMATION
  Report Type: 
  Country: None (occurrence: None)
  Receive Date: 20090716
  Receipt Date: 20090707
  Transmission Date: 20100115
  Serious: Yes (Other)
  Sender: FDA-Public Use
  Company Number: PHHY2009BR27862

PATIENT
  Age: 30 Year
  Sex: Male

DRUGS (3)
  1. TEGRETOL [Suspect]
     Indication: MENTAL DISORDER
  2. TEGRETOL [Suspect]
     Indication: MENTAL DISORDER
     Dosage: 4 TABLETS/DAY
  3. GARDENAL [Concomitant]
     Indication: MENTAL DISORDER

REACTIONS (4)
  - AGGRESSION [None]
  - DEPRESSION [None]
  - MENTAL DISORDER [None]
  - SYNCOPE [None]
